FAERS Safety Report 6759531-1 (Version None)
Quarter: 2010Q2

REPORT INFORMATION
  Report Type: 
  Country: None (occurrence: None)
  Receive Date: 20100603
  Receipt Date: 20100518
  Transmission Date: 20101027
  Serious: Yes (Life-Threatening, Hospitalization)
  Sender: FDA-Public Use
  Company Number: JP-SOLVAY-00310001410

PATIENT
  Age: 62 Year
  Sex: Female

DRUGS (24)
  1. LUVOX [Suspect]
     Indication: DEPRESSION
     Dosage: 25 MILLIGRAM(S) ORAL
     Route: 048
     Dates: start: 20100210, end: 20100215
  2. COTRIM [Suspect]
     Indication: MULTIPLE MYELOMA
     Dosage: ORAL
     Route: 048
     Dates: start: 20090427, end: 20090429
  3. COTRIM [Suspect]
     Indication: MULTIPLE MYELOMA
     Dosage: ORAL
     Route: 048
     Dates: start: 20100106, end: 20100215
  4. NOVAMINE 15% [Suspect]
     Indication: MULTIPLE MYELOMA
     Dosage: 10 MILLIGRAM(S) ORAL
     Route: 048
     Dates: start: 20100106, end: 20100215
  5. FLURBIPROFEN [Suspect]
     Indication: MULTIPLE MYELOMA
     Dosage: OTHER
     Route: 050
     Dates: start: 20100210, end: 20100210
  6. MIRTAZAPINE [Concomitant]
  7. ALOSENN (SENNA LEAF-SENNA POD) [Concomitant]
  8. MAGMITT (MAGNESIUM OXIDE) [Concomitant]
  9. RIZE (CLOTIAZEPAM) [Concomitant]
  10. AMLODIN OD (AMLODIPINE BESILATE) [Concomitant]
  11. ASPARA POTASSIUM (POTASSIUM L-ASPARTATE) [Concomitant]
  12. OMEPRAZOLE [Concomitant]
  13. PREDNISOLONE [Concomitant]
  14. PRIMPERAN TAB [Concomitant]
  15. DECADRON [Concomitant]
  16. OXINORM (OXYCODONE HYDROCHLORIDE) [Concomitant]
  17. OXYCONTIN [Concomitant]
  18. ZOVIRAX [Concomitant]
  19. KYTRIL [Concomitant]
  20. ONCOVIN [Concomitant]
  21. ADRIAMYCIN PFS [Concomitant]
  22. HUMULIN R (INSULIN HUMAN (GENETICAL RECOMBINATION)) [Concomitant]
  23. NEUPOGEN [Concomitant]
  24. FIRSTCIN (CEFOZOPRAN HYDROCHLORIDE) [Concomitant]

REACTIONS (7)
  - ALANINE AMINOTRANSFERASE INCREASED [None]
  - APPARENT LIFE THREATENING EVENT [None]
  - ASPARTATE AMINOTRANSFERASE INCREASED [None]
  - BLOOD ALKALINE PHOSPHATASE INCREASED [None]
  - BLOOD LACTATE DEHYDROGENASE INCREASED [None]
  - GAMMA-GLUTAMYLTRANSFERASE INCREASED [None]
  - SOMNOLENCE [None]
